FAERS Safety Report 24873056 (Version 1)
Quarter: 2025Q1

REPORT INFORMATION
  Report Type: Spontaneous
  Country: US (occurrence: None)
  Receive Date: 20250121
  Receipt Date: 20250121
  Transmission Date: 20250409
  Serious: Yes (Hospitalization)
  Sender: FDA-CTU
  Company Number: None

PATIENT
  Age: 77 Year
  Sex: Female

DRUGS (2)
  1. HYQVIA [Suspect]
     Active Substance: HUMAN IMMUNOGLOBULIN G\HYALURONIDASE (HUMAN RECOMBINANT)
     Indication: Immunodeficiency common variable
     Dosage: OTHER QUANTITY : 35GM (350ML);?FREQUENCY : MONTHLY;?
     Route: 058
     Dates: start: 201611
  2. HYQVIA [Suspect]
     Active Substance: HUMAN IMMUNOGLOBULIN G\HYALURONIDASE (HUMAN RECOMBINANT)
     Indication: Immunodeficiency common variable
     Dosage: OTHER QUANTITY : 35MG (350ML);?FREQUENCY : MONTHLY;?
     Route: 058
     Dates: start: 201611

REACTIONS (4)
  - Infusion site swelling [None]
  - Infusion site pain [None]
  - Cardiac failure [None]
  - Pulmonary oedema [None]

NARRATIVE: CASE EVENT DATE: 20241101
